FAERS Safety Report 5406342-5 (Version None)
Quarter: 2007Q3

REPORT INFORMATION
  Report Type: 
  Country: None (occurrence: None)
  Receive Date: 20070713
  Receipt Date: 20070423
  Transmission Date: 20080115
  Serious: Yes (Hospitalization, Other)
  Sender: FDA-Public Use
  Company Number: US-JNJFOC-20060803753

PATIENT
  Age: 20 Year
  Sex: Female
  Weight: 94.1214 kg

DRUGS (4)
  1. ORTHO EVRA [Suspect]
     Indication: DRUG USE FOR UNKNOWN INDICATION
     Dosage: TRANSDERMAL
     Route: 062
     Dates: start: 20030201
  2. DEPO-PROVERA [Suspect]
     Indication: CONTRACEPTION
     Dates: start: 20030408
  3. PROVENTIL (SALBUTAMOL)INHALATION [Concomitant]
  4. MOTRIN [Concomitant]

REACTIONS (2)
  - DEEP VEIN THROMBOSIS [None]
  - PULMONARY EMBOLISM [None]
